FAERS Safety Report 25764888 (Version 2)
Quarter: 2025Q4

REPORT INFORMATION
  Report Type: Report from Study
  Country: CA (occurrence: CA)
  Receive Date: 20250905
  Receipt Date: 20251104
  Transmission Date: 20260118
  Serious: Yes (Hospitalization, Other)
  Sender: CELLTRION
  Company Number: CA-CELLTRION INC.-2025CA031361

PATIENT

DRUGS (44)
  1. OMALIZUMAB [Suspect]
     Active Substance: OMALIZUMAB
     Indication: Asthma
     Dosage: UNK
     Route: 058
  2. OMALIZUMAB [Suspect]
     Active Substance: OMALIZUMAB
     Dosage: UNK
     Route: 058
  3. OMALIZUMAB [Suspect]
     Active Substance: OMALIZUMAB
     Dosage: UNK
     Route: 058
  4. OMALIZUMAB [Suspect]
     Active Substance: OMALIZUMAB
     Dosage: UNK
     Route: 058
  5. OMALIZUMAB [Suspect]
     Active Substance: OMALIZUMAB
     Dosage: UNK
     Route: 058
  6. OMALIZUMAB [Suspect]
     Active Substance: OMALIZUMAB
     Dosage: UNK
     Route: 058
  7. OMALIZUMAB [Suspect]
     Active Substance: OMALIZUMAB
     Dosage: 375 MG, 1 EVERY 2 WEEKS
     Route: 058
  8. OMALIZUMAB [Suspect]
     Active Substance: OMALIZUMAB
     Dosage: 375 MG, 1 EVERY 2 WEEKS
     Route: 058
  9. OMALIZUMAB [Suspect]
     Active Substance: OMALIZUMAB
     Dosage: 375 MG, 1 EVERY 2 WEEKS
     Route: 058
  10. OMALIZUMAB [Suspect]
     Active Substance: OMALIZUMAB
     Dosage: 375 MG, 1 EVERY 2 WEEKS
     Route: 058
  11. OMALIZUMAB [Suspect]
     Active Substance: OMALIZUMAB
     Dosage: 375 MG, 1 EVERY 2 WEEKS
     Route: 058
  12. OMALIZUMAB [Suspect]
     Active Substance: OMALIZUMAB
     Dosage: 375 MG, 1 EVERY 2 WEEKS
     Route: 058
  13. OMALIZUMAB [Suspect]
     Active Substance: OMALIZUMAB
     Dosage: 375 MG, 1 EVERY 2 WEEKS
     Route: 058
  14. OMALIZUMAB [Suspect]
     Active Substance: OMALIZUMAB
     Dosage: 375 MG, 1 EVERY 2 WEEKS
     Route: 058
  15. OMALIZUMAB [Suspect]
     Active Substance: OMALIZUMAB
     Dosage: 375 MG, 1 EVERY 2 WEEKS
     Route: 058
  16. OMALIZUMAB [Suspect]
     Active Substance: OMALIZUMAB
     Dosage: 375 MG, 1 EVERY 2 WEEKS
     Route: 058
  17. OMALIZUMAB [Suspect]
     Active Substance: OMALIZUMAB
     Dosage: 375 MG, 1 EVERY 2 WEEKS
     Route: 058
  18. OMALIZUMAB [Suspect]
     Active Substance: OMALIZUMAB
     Dosage: 450 MG
     Route: 058
  19. OMALIZUMAB [Suspect]
     Active Substance: OMALIZUMAB
     Dosage: 375 MG
     Route: 058
  20. OMALIZUMAB [Suspect]
     Active Substance: OMALIZUMAB
     Dosage: 375 MG
     Route: 058
  21. OMALIZUMAB [Suspect]
     Active Substance: OMALIZUMAB
     Dosage: 375 MG
     Route: 065
  22. OMALIZUMAB [Suspect]
     Active Substance: OMALIZUMAB
     Indication: Asthma
     Dosage: UNK
     Route: 058
  23. OMALIZUMAB [Suspect]
     Active Substance: OMALIZUMAB
     Dosage: UNK
     Route: 058
  24. OMALIZUMAB [Suspect]
     Active Substance: OMALIZUMAB
     Dosage: UNK
     Route: 058
  25. OMALIZUMAB [Suspect]
     Active Substance: OMALIZUMAB
     Dosage: UNK
     Route: 058
  26. OMALIZUMAB [Suspect]
     Active Substance: OMALIZUMAB
     Dosage: UNK
     Route: 058
  27. OMALIZUMAB [Suspect]
     Active Substance: OMALIZUMAB
     Dosage: UNK
     Route: 058
  28. OMALIZUMAB [Suspect]
     Active Substance: OMALIZUMAB
     Dosage: 375 MG, 1 EVERY 2 WEEKS
     Route: 058
  29. OMALIZUMAB [Suspect]
     Active Substance: OMALIZUMAB
     Dosage: 375 MG, 1 EVERY 2 WEEKS
     Route: 058
  30. OMALIZUMAB [Suspect]
     Active Substance: OMALIZUMAB
     Dosage: 375 MG, 1 EVERY 2 WEEKS
     Route: 058
  31. OMALIZUMAB [Suspect]
     Active Substance: OMALIZUMAB
     Dosage: 375 MG, 1 EVERY 2 WEEKS
     Route: 058
  32. OMALIZUMAB [Suspect]
     Active Substance: OMALIZUMAB
     Dosage: 375 MG, 1 EVERY 2 WEEKS
     Route: 058
  33. OMALIZUMAB [Suspect]
     Active Substance: OMALIZUMAB
     Dosage: 375 MG, 1 EVERY 2 WEEKS
     Route: 058
  34. OMALIZUMAB [Suspect]
     Active Substance: OMALIZUMAB
     Dosage: 375 MG, 1 EVERY 2 WEEKS
     Route: 058
  35. OMALIZUMAB [Suspect]
     Active Substance: OMALIZUMAB
     Dosage: 375 MG, 1 EVERY 2 WEEKS
     Route: 058
  36. OMALIZUMAB [Suspect]
     Active Substance: OMALIZUMAB
     Dosage: 375 MG, 1 EVERY 2 WEEKS
     Route: 058
  37. OMALIZUMAB [Suspect]
     Active Substance: OMALIZUMAB
     Dosage: 450 MG
     Route: 058
  38. OMALIZUMAB [Suspect]
     Active Substance: OMALIZUMAB
     Dosage: 375 MG
     Route: 058
  39. OMALIZUMAB [Suspect]
     Active Substance: OMALIZUMAB
     Dosage: 375 MG
     Route: 058
  40. OMALIZUMAB [Suspect]
     Active Substance: OMALIZUMAB
     Dosage: 375 MG
     Route: 065
  41. BUDESONIDE\FORMOTEROL FUMARATE [Concomitant]
     Active Substance: BUDESONIDE\FORMOTEROL FUMARATE
     Indication: Product used for unknown indication
     Route: 065
  42. NASONEX [Concomitant]
     Active Substance: MOMETASONE FUROATE
     Indication: Product used for unknown indication
     Route: 065
  43. PREDNISONE [Concomitant]
     Active Substance: PREDNISONE
     Indication: Product used for unknown indication
     Route: 065
  44. SINGULAIR [Concomitant]
     Active Substance: MONTELUKAST SODIUM
     Indication: Product used for unknown indication
     Route: 065

REACTIONS (29)
  - Blood pressure systolic increased [Not Recovered/Not Resolved]
  - Bone pain [Not Recovered/Not Resolved]
  - Decreased activity [Not Recovered/Not Resolved]
  - Dysphagia [Not Recovered/Not Resolved]
  - Dyspnoea [Not Recovered/Not Resolved]
  - Eating disorder [Not Recovered/Not Resolved]
  - Erythema [Not Recovered/Not Resolved]
  - Fall [Not Recovered/Not Resolved]
  - Gait disturbance [Not Recovered/Not Resolved]
  - Lipoma [Not Recovered/Not Resolved]
  - Nasal congestion [Not Recovered/Not Resolved]
  - Oesophageal achalasia [Not Recovered/Not Resolved]
  - Parkinson^s disease [Not Recovered/Not Resolved]
  - Productive cough [Not Recovered/Not Resolved]
  - Prostate cancer [Not Recovered/Not Resolved]
  - Rosacea [Not Recovered/Not Resolved]
  - Skin plaque [Not Recovered/Not Resolved]
  - Tremor [Not Recovered/Not Resolved]
  - Weight decreased [Not Recovered/Not Resolved]
  - Nasopharyngitis [Not Recovered/Not Resolved]
  - Fat tissue decreased [Not Recovered/Not Resolved]
  - Mobility decreased [Not Recovered/Not Resolved]
  - Pain [Not Recovered/Not Resolved]
  - Injection site bruising [Not Recovered/Not Resolved]
  - Cough [Not Recovered/Not Resolved]
  - Inappropriate schedule of product administration [Not Recovered/Not Resolved]
  - Incorrect dose administered [Not Recovered/Not Resolved]
  - Product dispensing error [Not Recovered/Not Resolved]
  - Product administered at inappropriate site [Not Recovered/Not Resolved]
